FAERS Safety Report 6875548-0 (Version None)
Quarter: 2010Q3

REPORT INFORMATION
  Report Type: 
  Country: None (occurrence: None)
  Receive Date: 20100727
  Receipt Date: 20100716
  Transmission Date: 20110219
  Serious: No
  Sender: FDA-Public Use
  Company Number: US-JNJFOC-20100705896

PATIENT
  Sex: Female

DRUGS (6)
  1. DURAGESIC-100 [Suspect]
     Indication: PERIPHERAL SENSORY NEUROPATHY
     Route: 062
  2. DURAGESIC-100 [Suspect]
     Dosage: NDC# 5045809205
     Route: 062
  3. PERCOCET [Concomitant]
     Indication: PAIN
     Route: 048
  4. PEPCID [Concomitant]
     Indication: GASTRIC DISORDER
     Route: 048
  5. METOPROLOL SUCCINATE [Concomitant]
     Indication: BLOOD PRESSURE
     Route: 048
  6. EVISTA [Concomitant]
     Route: 048

REACTIONS (5)
  - ANXIETY [None]
  - APPLICATION SITE PRURITUS [None]
  - CERUMEN IMPACTION [None]
  - DRUG ADMINISTERED AT INAPPROPRIATE SITE [None]
  - DRUG INEFFECTIVE [None]
